FAERS Safety Report 9581116 (Version 2)
Quarter: 2013Q4

REPORT INFORMATION
  Report Type: Spontaneous
  Country: GB (occurrence: GB)
  Receive Date: 20131002
  Receipt Date: 20131106
  Transmission Date: 20140711
  Serious: Yes (Disabling)
  Sender: FDA-Public Use
  Company Number: GB-GLAXOSMITHKLINE-B0923308A

PATIENT
  Age: 66 Year
  Sex: Female

DRUGS (1)
  1. ALLI [Suspect]
     Indication: PRODUCT USED FOR UNKNOWN INDICATION
     Dosage: 1CAP THREE TIMES PER DAY
     Route: 048
     Dates: start: 20130717, end: 20130818

REACTIONS (19)
  - Loss of consciousness [Unknown]
  - Cardiac disorder [Unknown]
  - Dyspnoea [Unknown]
  - Renal disorder [Unknown]
  - Hypersensitivity [Unknown]
  - Malaise [Unknown]
  - Malaise [Unknown]
  - Dizziness [Unknown]
  - Abdominal pain lower [Unknown]
  - Local swelling [Unknown]
  - Joint swelling [Unknown]
  - Feeling abnormal [Unknown]
  - Headache [Unknown]
  - Diarrhoea [Unknown]
  - Thirst [Unknown]
  - Nausea [Not Recovered/Not Resolved]
  - Tremor [Not Recovered/Not Resolved]
  - Palpitations [Unknown]
  - Product quality issue [Unknown]
